FAERS Safety Report 7993769-0 (Version None)
Quarter: 2011Q4

REPORT INFORMATION
  Report Type: 
  Country: None (occurrence: None)
  Receive Date: 20111220
  Receipt Date: 20111214
  Transmission Date: 20120403
  Serious: No
  Sender: FDA-Public Use
  Company Number: US-BIOGENIDEC-2011BI035051

PATIENT
  Age: 55 Year
  Sex: Female

DRUGS (2)
  1. TYSABRI [Suspect]
     Indication: MULTIPLE SCLEROSIS
     Route: 042
     Dates: start: 20110715
  2. TYSABRI [Suspect]
     Route: 042
     Dates: start: 20080731, end: 20081001

REACTIONS (2)
  - URTICARIA [None]
  - DRUG SPECIFIC ANTIBODY PRESENT [None]
